FAERS Safety Report 21389988 (Version 1)
Quarter: 2022Q3

REPORT INFORMATION
  Report Type: Spontaneous
  Country: HU (occurrence: HU)
  Receive Date: 20220929
  Receipt Date: 20220929
  Transmission Date: 20221027
  Serious: Yes (Other)
  Sender: FDA-Public Use
  Company Number: HU-TEVA-2022-HU-2075503

PATIENT
  Age: 72 Year
  Sex: Female

DRUGS (1)
  1. METFORMIN HYDROCHLORIDE [Suspect]
     Active Substance: METFORMIN HYDROCHLORIDE
     Indication: Product used for unknown indication
     Dosage: 2000 MILLIGRAM DAILY;
     Route: 048

REACTIONS (6)
  - Deafness [Unknown]
  - Weight decreased [Unknown]
  - Nausea [Unknown]
  - Malaise [Unknown]
  - Decreased appetite [Unknown]
  - Hypogeusia [Unknown]

NARRATIVE: CASE EVENT DATE: 20220701
